FAERS Safety Report 10536951 (Version 3)
Quarter: 2014Q4

REPORT INFORMATION
  Report Type: Spontaneous
  Country: US (occurrence: US)
  Receive Date: 20141022
  Receipt Date: 20141112
  Transmission Date: 20150529
  Serious: Yes (Other)
  Sender: FDA-Public Use
  Company Number: US-RB PHARMACEUTICALS LIMITED-RB-70376-2014

PATIENT
  Age: 59 Year
  Sex: Female

DRUGS (5)
  1. SUBOXONE [Suspect]
     Active Substance: BUPRENORPHINE HYDROCHLORIDE\NALOXONE HYDROCHLORIDE
     Indication: DRUG DEPENDENCE
     Dosage: 24 MG, DAILY
     Route: 060
     Dates: start: 201407, end: 2014
  2. ZOLOFT [Concomitant]
     Active Substance: SERTRALINE HYDROCHLORIDE
     Indication: DEPRESSION
     Dosage: 50 MG, QD
     Route: 048
     Dates: start: 20140728
  3. SUBOXONE [Suspect]
     Active Substance: BUPRENORPHINE HYDROCHLORIDE\NALOXONE HYDROCHLORIDE
     Dosage: CUTS THE 8MG FILM INTO THREE PART AND TAKES ONE PIECE AT A TIME
     Route: 060
     Dates: start: 201408
  4. SUBOXONE [Suspect]
     Active Substance: BUPRENORPHINE HYDROCHLORIDE\NALOXONE HYDROCHLORIDE
     Dosage: 1/4TH OF THE FILM IN MORNING AND AFTERNOON, 3/4 AT NIGHT
     Route: 060
     Dates: start: 2014, end: 201408
  5. EFFEXOR [Concomitant]
     Active Substance: VENLAFAXINE HYDROCHLORIDE
     Indication: DEPRESSION
     Dosage: 150 MG, QD
     Route: 048
     Dates: end: 20140727

REACTIONS (16)
  - Feeling abnormal [Unknown]
  - Asthenia [Unknown]
  - Intentional product misuse [Unknown]
  - Memory impairment [Not Recovered/Not Resolved]
  - Dysphonia [Unknown]
  - Insomnia [Unknown]
  - Somnolence [Unknown]
  - Loss of consciousness [Recovered/Resolved]
  - Intentional underdose [Not Recovered/Not Resolved]
  - Extra dose administered [Unknown]
  - Wrong technique in drug usage process [Not Recovered/Not Resolved]
  - Neck injury [Unknown]
  - Intentional product misuse [Not Recovered/Not Resolved]
  - Contusion [Unknown]
  - Back injury [Unknown]
  - Fall [Recovered/Resolved]

NARRATIVE: CASE EVENT DATE: 2014
